FAERS Safety Report 20763105 (Version 1)
Quarter: 2022Q2

REPORT INFORMATION
  Report Type: Spontaneous
  Country: GR (occurrence: GR)
  Receive Date: 20220428
  Receipt Date: 20220428
  Transmission Date: 20220721
  Serious: Yes (Hospitalization, Other)
  Sender: FDA-Public Use
  Company Number: GR-PFIZER INC-202200578952

PATIENT
  Age: 79 Year
  Sex: Female

DRUGS (5)
  1. ATORVASTATIN CALCIUM [Suspect]
     Active Substance: ATORVASTATIN CALCIUM
     Indication: Dyslipidaemia
     Dosage: UNK
  2. RAMIPRIL [Suspect]
     Active Substance: RAMIPRIL
     Indication: Hypertension
     Dosage: UNK
  3. DOBUTAMINE [Concomitant]
     Active Substance: DOBUTAMINE HYDROCHLORIDE
     Dosage: UNK
  4. METFORMIN [Concomitant]
     Active Substance: METFORMIN HYDROCHLORIDE
     Indication: Diabetes mellitus
     Dosage: UNK
  5. NOREPINEPHRINE [Concomitant]
     Active Substance: NOREPINEPHRINE
     Dosage: UNK

REACTIONS (12)
  - Jaundice [Unknown]
  - Ventricular hypokinesia [Recovering/Resolving]
  - Pancreatic mass [Unknown]
  - Supraventricular tachycardia [Recovered/Resolved]
  - Pyrexia [Unknown]
  - Cholestasis [Unknown]
  - Cholangitis [Unknown]
  - Stress cardiomyopathy [Recovering/Resolving]
  - Abnormal loss of weight [Unknown]
  - Left ventricular dysfunction [Recovering/Resolving]
  - Hyperbilirubinaemia [Unknown]
  - Dilatation intrahepatic duct acquired [Unknown]
